FAERS Safety Report 6631934-5 (Version None)
Quarter: 2010Q1

REPORT INFORMATION
  Report Type: 
  Country: None (occurrence: None)
  Receive Date: 20100312
  Receipt Date: 20090604
  Transmission Date: 20100710
  Serious: No
  Sender: FDA-Public Use
  Company Number: US-BIOGENIDEC-2009BI017002

PATIENT
  Age: 54 Year
  Sex: Female

DRUGS (4)
  1. AVONEX [Suspect]
     Indication: MULTIPLE SCLEROSIS
     Route: 030
     Dates: start: 20090501, end: 20090604
  2. PROZAC [Concomitant]
     Indication: DEPRESSION
     Route: 048
     Dates: start: 20000101
  3. DARVOCET [Concomitant]
     Indication: PAIN IN EXTREMITY
     Route: 048
  4. DARVOCET [Concomitant]
     Indication: BACK PAIN
     Route: 048

REACTIONS (6)
  - ARTHRALGIA [None]
  - ASTHENIA [None]
  - CONTUSION [None]
  - DEPRESSION [None]
  - INFLUENZA LIKE ILLNESS [None]
  - JOINT SPRAIN [None]
